FAERS Safety Report 5781229-7 (Version None)
Quarter: 2008Q2

REPORT INFORMATION
  Report Type: 
  Country: None (occurrence: None)
  Receive Date: 20080618
  Receipt Date: 20080605
  Transmission Date: 20081010
  Serious: Yes (Death, Other)
  Sender: FDA-Public Use
  Company Number: 2008AL006540

PATIENT
  Age: 65 Year
  Sex: Male
  Weight: 58.9676 kg

DRUGS (5)
  1. DIGOXIN [Suspect]
     Indication: ARRHYTHMIA
     Dosage: 0.25MG DAILY PO
     Route: 048
  2. COUMADIN [Concomitant]
  3. AEPIRIN [Concomitant]
  4. COREG [Concomitant]
  5. SPIRONOLACTONE [Concomitant]

REACTIONS (2)
  - CARDIAC ARREST [None]
  - RENAL FAILURE [None]
